FAERS Safety Report 7658120-4 (Version None)
Quarter: 2011Q3

REPORT INFORMATION
  Report Type: 
  Country: None (occurrence: None)
  Receive Date: 20110805
  Receipt Date: 20110725
  Transmission Date: 20111222
  Serious: No
  Sender: FDA-Public Use
  Company Number: US-B.I. PHARMACEUTICALS,INC./RIDGEFIELD-2011-BP-18462BP

PATIENT
  Sex: Male

DRUGS (7)
  1. CYCLOSET [Concomitant]
     Dosage: 2.4 MG
     Route: 048
     Dates: start: 20110619
  2. PRILOSEC [Concomitant]
     Route: 048
  3. COZAAR [Concomitant]
     Indication: BLOOD PRESSURE
     Route: 048
  4. LIPITOR [Concomitant]
     Indication: BLOOD CHOLESTEROL
     Route: 048
  5. HYZAAR [Concomitant]
     Indication: BLOOD PRESSURE
     Route: 048
  6. TRADJENTA [Suspect]
     Indication: TYPE 2 DIABETES MELLITUS
     Dosage: 5 MG
     Route: 048
     Dates: start: 20110717
  7. VITAMINS LOTS [Concomitant]
     Route: 048

REACTIONS (2)
  - ABDOMINAL PAIN LOWER [None]
  - TENDERNESS [None]
